FAERS Safety Report 19421205 (Version 1)
Quarter: 2021Q2

REPORT INFORMATION
  Report Type: Spontaneous
  Country: US (occurrence: US)
  Receive Date: 20210615
  Receipt Date: 20210615
  Transmission Date: 20210717
  Serious: Yes (Other)
  Sender: FDA-Public Use
  Company Number: None

PATIENT
  Age: 50 Year
  Sex: Female

DRUGS (2)
  1. MODERNA COVID?19 VACCINE [Suspect]
     Active Substance: CX-024414
     Dates: start: 20210309, end: 20210309
  2. SULFUR HEXAFLUORIDE LIPID?TYPE A MICROSPHERES [Suspect]
     Active Substance: SULFUR HEXAFLUORIDE
     Indication: X-RAY WITH CONTRAST
     Dosage: ?          OTHER FREQUENCY:ONCE;?
     Route: 042
     Dates: start: 20210512, end: 20210512

REACTIONS (2)
  - Allergic reaction to excipient [None]
  - Product formulation issue [None]

NARRATIVE: CASE EVENT DATE: 20210512
